FAERS Safety Report 16830782 (Version 1)
Quarter: 2019Q3

REPORT INFORMATION
  Report Type: Report from Study
  Country: US (occurrence: US)
  Receive Date: 20190920
  Receipt Date: 20190920
  Transmission Date: 20191005
  Serious: Yes (Death)
  Sender: FDA-Public Use
  Company Number: US-ROCHE-2409764

PATIENT
  Age: 63 Year
  Sex: Male

DRUGS (2)
  1. COTELLIC [Suspect]
     Active Substance: COBIMETINIB
     Indication: LUNG NEOPLASM MALIGNANT
  2. COTELLIC [Suspect]
     Active Substance: COBIMETINIB
     Indication: SMALL INTESTINE CARCINOMA
     Dosage: TAKE 3 TABLET(S) BY MOUTH EVERY DAY FOR 21 DAYS EV
     Route: 048

REACTIONS (1)
  - Death [Fatal]

NARRATIVE: CASE EVENT DATE: 20190525
